FAERS Safety Report 5767414-9 (Version None)
Quarter: 2008Q2

REPORT INFORMATION
  Report Type: 
  Country: None (occurrence: None)
  Receive Date: 20080612
  Receipt Date: 20080610
  Transmission Date: 20081010
  Serious: Yes (Death, Hospitalization)
  Sender: FDA-Public Use
  Company Number: PH-BRISTOL-MYERS SQUIBB COMPANY-14223374

PATIENT
  Age: 77 Year
  Sex: Female

DRUGS (1)
  1. IRBESARTAN [Suspect]
     Indication: HYPERTENSION
     Dosage: PRESCRIBED 150 MG AS AN INITIAL DOSE, THEN DOSE INCREASED TO 300 MG
     Route: 048

REACTIONS (3)
  - CARDIAC ARREST [None]
  - HYPERKALAEMIA [None]
  - HYPONATRAEMIA [None]
